FAERS Safety Report 18321577 (Version 1)
Quarter: 2020Q3

REPORT INFORMATION
  Report Type: Spontaneous
  Country: JP (occurrence: JP)
  Receive Date: 20200929
  Receipt Date: 20200929
  Transmission Date: 20201103
  Serious: Yes (Hospitalization, Other)
  Sender: FDA-Public Use
  Company Number: JP-CELLTRION INC.-2020JP026598

PATIENT

DRUGS (2)
  1. INFLIXIMAB (UNKNOWN) [Suspect]
     Active Substance: INFLIXIMAB
     Dosage: SECOND COURSE: RESUMPTION AFTER CHILDBIRTH
  2. INFLIXIMAB (UNKNOWN) [Suspect]
     Active Substance: INFLIXIMAB
     Indication: PUSTULAR PSORIASIS
     Dosage: FIRST COURSE: INITIATED THERAPY AT 25 YEARS OF AGE

REACTIONS (12)
  - Tonsillar hypertrophy [Unknown]
  - Pharyngitis [Unknown]
  - Blood creatinine abnormal [Unknown]
  - Condition aggravated [Recovering/Resolving]
  - Upper respiratory tract infection [Unknown]
  - Off label use [Unknown]
  - Haematuria [Unknown]
  - Renal impairment [Unknown]
  - IgA nephropathy [Recovering/Resolving]
  - Maternal exposure during pregnancy [Unknown]
  - Drug effective for unapproved indication [Unknown]
  - Proteinuria [Unknown]
